FAERS Safety Report 4561146-0 (Version None)
Quarter: 2005Q1

REPORT INFORMATION
  Report Type: 
  Country: None (occurrence: None)
  Receive Date: 20050126
  Receipt Date: 20041020
  Transmission Date: 20050727
  Serious: Yes (Hospitalization)
  Sender: FDA-Public Use
  Company Number: US-AMGEN-US096336

PATIENT
  Sex: Female
  Weight: 57.2 kg

DRUGS (12)
  1. ARANESP [Suspect]
     Indication: RENAL FAILURE CHRONIC
     Route: 058
     Dates: start: 20040423
  2. CELLCEPT [Concomitant]
     Dates: start: 20040713
  3. MICRO-K [Concomitant]
  4. DIATX [Concomitant]
  5. LASIX [Concomitant]
  6. HYDRALAZINE HCL [Concomitant]
  7. PHOSLO [Concomitant]
  8. ACETYLDIGOXIN [Concomitant]
  9. CAPTOPRIL [Concomitant]
  10. RANITIDINE [Concomitant]
  11. METOPROLOL [Concomitant]
  12. SOLU-MEDROL [Concomitant]

REACTIONS (6)
  - ANAEMIA [None]
  - BLOOD IRON INCREASED [None]
  - C-REACTIVE PROTEIN INCREASED [None]
  - HAEMOGLOBIN DECREASED [None]
  - LOCALISED INFECTION [None]
  - THERAPEUTIC RESPONSE DECREASED [None]
